FAERS Safety Report 26055279 (Version 1)
Quarter: 2025Q4

REPORT INFORMATION
  Report Type: Spontaneous
  Country: US (occurrence: US)
  Receive Date: 20251117
  Receipt Date: 20251117
  Transmission Date: 20260117
  Serious: No
  Sender: MERZ
  Company Number: US-Merz Pharmaceuticals GmbH-2025110000085

PATIENT

DRUGS (1)
  1. XEOMIN [Suspect]
     Active Substance: INCOBOTULINUMTOXINA
     Indication: Salivary hypersecretion
     Dosage: 50 INTERNATIONAL UNIT
     Route: 030

REACTIONS (3)
  - Underdose [Unknown]
  - Off label use [Unknown]
  - Incorrect route of product administration [Unknown]
